FAERS Safety Report 17958325 (Version 1)
Quarter: 2020Q2

REPORT INFORMATION
  Report Type: Spontaneous
  Country: DE (occurrence: DE)
  Receive Date: 20200629
  Receipt Date: 20200629
  Transmission Date: 20200714
  Serious: Yes (Death, Hospitalization, Other)
  Sender: FDA-Public Use
  Company Number: DE-JNJFOC-20200633712

PATIENT
  Age: 86 Year
  Sex: Female

DRUGS (2)
  1. XARELTO [Suspect]
     Active Substance: RIVAROXABAN
     Indication: ATRIAL FIBRILLATION
  2. XARELTO [Suspect]
     Active Substance: RIVAROXABAN
     Indication: CEREBROVASCULAR ACCIDENT PROPHYLAXIS
     Dosage: 10 MG
     Route: 048
     Dates: start: 201712

REACTIONS (10)
  - Limb injury [Unknown]
  - Erythema [Unknown]
  - Pain in extremity [Unknown]
  - Skin ulcer haemorrhage [Unknown]
  - Peripheral swelling [Unknown]
  - Off label use [Unknown]
  - Exsanguination [Fatal]
  - Loss of consciousness [Unknown]
  - Eye haemorrhage [Unknown]
  - Dyspnoea [Unknown]

NARRATIVE: CASE EVENT DATE: 201712
